FAERS Safety Report 5726262-6 (Version None)
Quarter: 2008Q2

REPORT INFORMATION
  Report Type: 
  Country: None (occurrence: None)
  Receive Date: 20080501
  Receipt Date: 20080501
  Transmission Date: 20081010
  Serious: Yes (Hospitalization)
  Sender: FDA-Public Use
  Company Number: None

PATIENT

DRUGS (7)
  1. REVLIMID [Suspect]
     Indication: MYELODYSPLASTIC SYNDROME
     Dosage: 5MG DAILY PO
     Route: 048
  2. PREDNISONE TAB [Concomitant]
  3. NEUPOGEN [Concomitant]
  4. OMEPRAZOLE [Concomitant]
  5. VITAMIN B-12 [Concomitant]
  6. CENTRUM SILVER [Concomitant]
  7. AMLODIPINE [Concomitant]

REACTIONS (16)
  - CELLULITIS [None]
  - DIZZINESS [None]
  - ERYTHEMA [None]
  - GASTROOESOPHAGEAL REFLUX DISEASE [None]
  - HAEMOPTYSIS [None]
  - HYPOTENSION [None]
  - NASAL DISCOMFORT [None]
  - NASAL DISORDER [None]
  - NAUSEA [None]
  - PNEUMONIA [None]
  - RASH [None]
  - RHINALGIA [None]
  - SWELLING [None]
  - SWELLING FACE [None]
  - THROMBOCYTOPENIA [None]
  - VOMITING [None]
